FAERS Safety Report 8973208 (Version 1)
Quarter: 2012Q4

REPORT INFORMATION
  Report Type: 
  Country: US (occurrence: US)
  Receive Date: 20121219
  Receipt Date: 20121219
  Transmission Date: 20130627
  Serious: No
  Sender: FDA-Public Use
  Company Number: US-009507513-1212USA006327

PATIENT
  Age: 44 Year
  Sex: Male

DRUGS (5)
  1. PEGINTRON [Suspect]
     Indication: HEPATITIS C
     Dosage: PEGINTRON KIT
  2. XANAX [Concomitant]
  3. HYDROCODONE [Concomitant]
  4. [THERAPY UNSPECIFIED] [Concomitant]
     Indication: CONVULSION
  5. VITAMINS (UNSPECIFIED) [Concomitant]

REACTIONS (1)
  - No therapeutic response [Unknown]
